FAERS Safety Report 21741902 (Version 1)
Quarter: 2022Q4

REPORT INFORMATION
  Report Type: Spontaneous
  Country: US (occurrence: None)
  Receive Date: 20221216
  Receipt Date: 20221216
  Transmission Date: 20230112
  Serious: Yes (Life-Threatening)
  Sender: FDA-Public Use
  Company Number: None

PATIENT
  Age: 71 Year
  Sex: Female
  Weight: 81.4 kg

DRUGS (4)
  1. TIKOSYN [Suspect]
     Active Substance: DOFETILIDE
     Indication: Atrial fibrillation
     Dosage: FREQUENCY : TWICE A DAY;?
     Route: 048
  2. FUROSEMIDE [Concomitant]
  3. POTASSIUM CHLORIDE [Concomitant]
     Dates: start: 20221212
  4. Potassium chloride 20 mEq PO daily [Concomitant]
     Dates: start: 20221212

REACTIONS (4)
  - Atrial fibrillation [None]
  - Cardiac arrest [None]
  - Cardiac failure [None]
  - Drug interaction [None]

NARRATIVE: CASE EVENT DATE: 20221212
